FAERS Safety Report 20348663 (Version 1)
Quarter: 2022Q1

REPORT INFORMATION
  Report Type: Spontaneous
  Country: US (occurrence: None)
  Receive Date: 20220119
  Receipt Date: 20220119
  Transmission Date: 20220424
  Serious: Yes (Hospitalization)
  Sender: FDA-Public Use
  Company Number: US-MDD US Operations-MDD202105-001023

PATIENT
  Age: 96 Year
  Sex: Male
  Weight: 65.77 kg

DRUGS (2)
  1. MYOBLOC [Suspect]
     Active Substance: RIMABOTULINUMTOXINB
     Indication: Torticollis
     Dosage: 12,000-15,000 UNITS
     Dates: start: 2021
  2. PRILOSEC [Concomitant]
     Active Substance: OMEPRAZOLE MAGNESIUM
     Dosage: NOT PROVIDED

REACTIONS (5)
  - Urinary tract disorder [Unknown]
  - Vertigo [Unknown]
  - Fall [Unknown]
  - Muscular weakness [Unknown]
  - Vision blurred [Unknown]

NARRATIVE: CASE EVENT DATE: 20210521
